FAERS Safety Report 10281975 (Version 1)
Quarter: 2014Q3

REPORT INFORMATION
  Report Type: Report from Study
  Country: BR (occurrence: BR)
  Receive Date: 20140707
  Receipt Date: 20140707
  Transmission Date: 20150326
  Serious: Yes (Death, Other)
  Sender: FDA-Public Use
  Company Number: PHHY2014BR083344

PATIENT
  Sex: Female
  Weight: 80 kg

DRUGS (9)
  1. EXELON [Suspect]
     Active Substance: RIVASTIGMINE TARTRATE
     Dosage: UNK UKN, UNK
  2. ATENOLOL. [Concomitant]
     Active Substance: ATENOLOL
     Indication: BLOOD PRESSURE ABNORMAL
     Dosage: UNK UKN, UNK
     Dates: start: 2005
  3. EXELON [Suspect]
     Active Substance: RIVASTIGMINE TARTRATE
     Indication: FRONTOTEMPORAL DEMENTIA
     Dosage: 1 DF, TID (1 CAPSULE MORNING, 1 CAPSULE AT LUNCH AND 1 CAPSULE NIGHT)
     Dates: start: 2014
  4. EXELON [Suspect]
     Active Substance: RIVASTIGMINE TARTRATE
     Indication: DEMENTIA
     Dosage: 2 DF, DAILY
     Dates: end: 20140702
  5. LOSARTAN [Concomitant]
     Active Substance: LOSARTAN
     Indication: BLOOD PRESSURE ABNORMAL
     Dosage: UNK UKN, UNK
     Dates: start: 2005
  6. RISPERIDONE. [Concomitant]
     Active Substance: RISPERIDONE
     Dosage: UNK UKN, UNK
  7. AAS [Concomitant]
     Active Substance: ASPIRIN
     Dosage: 2 DF, DAILY
     Dates: start: 2005
  8. PURAN [Concomitant]
     Active Substance: LEVOTHYROXINE SODIUM
     Indication: THYROID DISORDER
     Dosage: 1.5 DF, DAILY (IN THE MORNING)
     Dates: start: 2005
  9. VICTOZA [Concomitant]
     Active Substance: LIRAGLUTIDE
     Indication: DIABETES MELLITUS
     Dosage: 1.2 MG, DAILY
     Dates: start: 2013

REACTIONS (2)
  - Dyspnoea [Unknown]
  - Cardiac arrest [Fatal]
